FAERS Safety Report 19704124 (Version 1)
Quarter: 2021Q3

REPORT INFORMATION
  Report Type: Spontaneous
  Country: US (occurrence: US)
  Receive Date: 20210814
  Receipt Date: 20210814
  Transmission Date: 20211014
  Serious: No
  Sender: FDA-Public Use
  Company Number: None

PATIENT
  Age: 63 Year
  Sex: Female
  Weight: 68.85 kg

DRUGS (19)
  1. AZELASTINE. [Concomitant]
     Active Substance: AZELASTINE HYDROCHLORIDE
  2. SEROQUEL [Concomitant]
     Active Substance: QUETIAPINE FUMARATE
  3. MONTELUKAST SODIUM. [Concomitant]
     Active Substance: MONTELUKAST SODIUM
  4. LITHIUM. [Concomitant]
     Active Substance: LITHIUM
  5. LAMOTRIGINE. [Concomitant]
     Active Substance: LAMOTRIGINE
  6. CRANBERRY. [Concomitant]
     Active Substance: CRANBERRY
  7. PRIMIDONE. [Suspect]
     Active Substance: PRIMIDONE
     Indication: ESSENTIAL TREMOR
     Dosage: ?          QUANTITY:1 TABLET(S);?
     Route: 048
     Dates: start: 20210813, end: 20210814
  8. AROMASIN [Concomitant]
     Active Substance: EXEMESTANE
  9. XANAX XR [Concomitant]
     Active Substance: ALPRAZOLAM
  10. ALBUTEROL. [Concomitant]
     Active Substance: ALBUTEROL
  11. MULTIPLE VITAMIN [Concomitant]
     Active Substance: VITAMINS
  12. VITAMIN C [Concomitant]
     Active Substance: ASCORBIC ACID
  13. MYRBETRIQ [Concomitant]
     Active Substance: MIRABEGRON
  14. OMEPRAZOLE. [Concomitant]
     Active Substance: OMEPRAZOLE
  15. HAIR SKIN + NAILS [Concomitant]
  16. LIPITOR [Concomitant]
     Active Substance: ATORVASTATIN CALCIUM
  17. VITAMIN D [Concomitant]
     Active Substance: VITAMIN D NOS
  18. FLOVENT [Concomitant]
     Active Substance: FLUTICASONE PROPIONATE
  19. ESTROVEN [Concomitant]
     Active Substance: DIETARY SUPPLEMENT

REACTIONS (3)
  - Feeling drunk [None]
  - Fatigue [None]
  - Gait disturbance [None]

NARRATIVE: CASE EVENT DATE: 20210814
